FAERS Safety Report 18235641 (Version 2)
Quarter: 2020Q3

REPORT INFORMATION
  Report Type: Spontaneous
  Country: TN (occurrence: TN)
  Receive Date: 20200905
  Receipt Date: 20200916
  Transmission Date: 20201103
  Serious: Yes (Death, Life-Threatening, Hospitalization, Other)
  Sender: FDA-Public Use
  Company Number: TN-ACCORD-198912

PATIENT
  Age: 76 Year
  Sex: Female

DRUGS (2)
  1. METFORMIN [Concomitant]
     Active Substance: METFORMIN HYDROCHLORIDE
     Indication: STEROID DIABETES
     Dates: start: 2015
  2. GLIMEPIRIDE. [Suspect]
     Active Substance: GLIMEPIRIDE
     Indication: HYPERGLYCAEMIA
     Dates: start: 2016

REACTIONS (6)
  - Hepatocellular injury [Fatal]
  - Anuria [Fatal]
  - Multiple organ dysfunction syndrome [Fatal]
  - Toxic epidermal necrolysis [Fatal]
  - Acute kidney injury [Fatal]
  - Acute respiratory failure [Fatal]

NARRATIVE: CASE EVENT DATE: 2016
